FAERS Safety Report 6057025-2 (Version None)
Quarter: 2009Q1

REPORT INFORMATION
  Report Type: 
  Country: None (occurrence: None)
  Receive Date: 20090126
  Receipt Date: 20090107
  Transmission Date: 20090719
  Serious: Yes (Death)
  Sender: FDA-Public Use
  Company Number: B0553663A

PATIENT
  Age: 48 Year
  Sex: Female

DRUGS (12)
  1. BUPROPION HCL [Suspect]
     Dosage: ORAL
     Route: 048
  2. VENLAFAXINE HCL [Suspect]
  3. HYDROCODONE BITARTRATE + ACETAMINOPHEN [Suspect]
  4. TRAMADOL HCL [Suspect]
  5. ANTI-DIABETIC MEDICATION (ANTI-DIABETIC MEDICATION) (FORMULATION UNKNO [Suspect]
  6. COCAINE (COCAINE) (FORMULATION UNKNOWN) [Suspect]
  7. IRBESARTAN [Suspect]
  8. HYDROCHLOROTHIAZIDE [Suspect]
  9. DIPHENOXYLATE HCL AND ATROPINE SULFATE [Suspect]
  10. OLANZAPINE [Suspect]
  11. QUINAPRIL [Suspect]
  12. BENZODIAZEPINES (BENZODIAZEPINES) (FORMULATION UNKNOWN) [Suspect]

REACTIONS (2)
  - CARDIO-RESPIRATORY ARREST [None]
  - COMPLETED SUICIDE [None]
